FAERS Safety Report 13065502 (Version 1)
Quarter: 2016Q4

REPORT INFORMATION
  Report Type: Spontaneous
  Country: CA (occurrence: CA)
  Receive Date: 20161227
  Receipt Date: 20161227
  Transmission Date: 20170207
  Serious: Yes (Hospitalization)
  Sender: FDA-Public Use
  Company Number: CA-NAPPMUNDI-GBR-2016-0042374

PATIENT
  Age: 50 Year
  Sex: Male
  Weight: 68 kg

DRUGS (13)
  1. TYLENOL WITH CODEINE [Concomitant]
     Active Substance: ACETAMINOPHEN\CODEINE PHOSPHATE
     Indication: PAIN IN EXTREMITY
  2. LANTUS [Concomitant]
     Active Substance: INSULIN GLARGINE
     Indication: DIABETES MELLITUS
     Dosage: 15 UNIT, EACH NIGHT
  3. CLONAZEPAM. [Concomitant]
     Active Substance: CLONAZEPAM
     Indication: ANXIETY
     Dosage: 0.5 MG, Q8H PRN
     Route: 048
     Dates: start: 201110
  4. LISPRO INSULIN [Concomitant]
     Active Substance: INSULIN LISPRO
     Indication: DIABETES MELLITUS
     Dosage: 10 UNIT, TID
  5. ROBAXACET [Concomitant]
     Active Substance: ACETAMINOPHEN\METHOCARBAMOL
     Indication: BACK PAIN
     Dosage: 2 TABLET, TID; (METHOCARBAMOL 500MG)
     Route: 048
     Dates: start: 20161108, end: 20161115
  6. HYDROMORPHONE [Concomitant]
     Active Substance: HYDROMORPHONE
     Dosage: UNK
  7. HYDROMORPHONE [Concomitant]
     Active Substance: HYDROMORPHONE
     Indication: BACK PAIN
     Dosage: 1-2 MG AT NIGHT, PRN
     Route: 048
     Dates: start: 20161117
  8. OXYCODONE HYDROCHLORIDE. [Suspect]
     Active Substance: OXYCODONE HYDROCHLORIDE
     Indication: PAIN
     Dosage: 2 TABLET, BID
     Route: 048
     Dates: start: 20161115, end: 20161117
  9. PANTOPRAZOLE [Concomitant]
     Active Substance: PANTOPRAZOLE SODIUM
     Dosage: 40 MG, DAILY
     Route: 042
     Dates: start: 20161117
  10. HYDROMORPHONE [Concomitant]
     Active Substance: HYDROMORPHONE
     Indication: BACK PAIN
     Dosage: 0.1-0.3MG, Q3H PRN
     Route: 042
     Dates: start: 20161118
  11. HYDROMORPHONE [Concomitant]
     Active Substance: HYDROMORPHONE
     Indication: BACK PAIN
     Dosage: 0.5-3 MG, PRN
     Route: 048
     Dates: start: 20161118, end: 20161124
  12. TYLENOL WITH CODEINE [Concomitant]
     Active Substance: ACETAMINOPHEN\CODEINE PHOSPHATE
     Indication: MUSCULOSKELETAL PAIN
     Dosage: 2-4 TABLETS ORALLY DAILY AS NEEDED
     Route: 048
     Dates: start: 201402
  13. IBUPROFEN. [Concomitant]
     Active Substance: IBUPROFEN
     Indication: BACK PAIN
     Dosage: 2 TABLET, TID
     Route: 048
     Dates: start: 20161108, end: 20161115

REACTIONS (4)
  - Diabetic ketoacidosis [Recovered/Resolved]
  - Vomiting [Unknown]
  - Nausea [Unknown]
  - Pancreatic disorder [Not Recovered/Not Resolved]

NARRATIVE: CASE EVENT DATE: 20161116
